FAERS Safety Report 10956211 (Version 1)
Quarter: 2015Q1

REPORT INFORMATION
  Report Type: Spontaneous
  Country: GB (occurrence: None)
  Receive Date: 20150324
  Receipt Date: 20150324
  Transmission Date: 20150721
  Serious: Yes (Hospitalization)
  Sender: FDA-Public Use
  Company Number: 20150834

PATIENT
  Sex: Female

DRUGS (1)
  1. METOJECT (METHOTREXATE DISODIUM) [Suspect]
     Active Substance: METHOTREXATE SODIUM
     Dosage: SOLUTION FOR INJECTION IN PRE-FILLED SYRINGE //

REACTIONS (2)
  - Drug dose omission [None]
  - Hospitalisation [None]
